FAERS Safety Report 6828040-3 (Version None)
Quarter: 2010Q3

REPORT INFORMATION
  Report Type: 
  Country: None (occurrence: None)
  Receive Date: 20100709
  Receipt Date: 20100701
  Transmission Date: 20110219
  Serious: Yes (Death, Hospitalization)
  Sender: FDA-Public Use
  Company Number: B0647241A

PATIENT
  Sex: Male

DRUGS (10)
  1. LAMICTAL [Suspect]
     Indication: CONVULSION
     Dosage: 25MG TWICE PER DAY
     Route: 048
     Dates: start: 20100225, end: 20100228
  2. TOPIRAMATE [Suspect]
     Indication: PRODUCT USED FOR UNKNOWN INDICATION
     Route: 048
  3. EXCEGRAN [Suspect]
     Indication: CONVULSION
     Dosage: 200MG PER DAY
     Route: 048
  4. LOXONIN [Concomitant]
     Route: 065
  5. BICOL [Concomitant]
     Route: 054
  6. PURSENNID [Concomitant]
     Route: 048
  7. MAGMITT [Concomitant]
     Route: 048
  8. AMARYL [Concomitant]
     Indication: DIABETES MELLITUS
     Dosage: 2MG PER DAY
     Route: 048
  9. GASTER D [Concomitant]
     Indication: GASTRIC ULCER
     Dosage: 40MG PER DAY
     Route: 048
  10. HARNAL [Concomitant]
     Indication: BENIGN PROSTATIC HYPERPLASIA
     Dosage: .2MG PER DAY
     Route: 048

REACTIONS (15)
  - ALANINE AMINOTRANSFERASE INCREASED [None]
  - ASPARTATE AMINOTRANSFERASE INCREASED [None]
  - BLOOD ALKALINE PHOSPHATASE INCREASED [None]
  - C-REACTIVE PROTEIN INCREASED [None]
  - EOSINOPHIL COUNT DECREASED [None]
  - ERYTHEMA [None]
  - EYELID EROSION [None]
  - LIP EROSION [None]
  - MUCOSAL EROSION [None]
  - PYREXIA [None]
  - RASH [None]
  - RASH GENERALISED [None]
  - STEVENS-JOHNSON SYNDROME [None]
  - URETHRAL ULCER [None]
  - WHITE BLOOD CELL COUNT INCREASED [None]
